FAERS Safety Report 15154712 (Version 1)
Quarter: 2018Q3

REPORT INFORMATION
  Report Type: Spontaneous
  Country: US (occurrence: US)
  Receive Date: 20180620
  Receipt Date: 20180620
  Transmission Date: 20181010
  Serious: Yes (Disabling, Other)
  Sender: FDA-Public Use
  Company Number: None

PATIENT
  Age: 59 Year
  Sex: Female
  Weight: 72 kg

DRUGS (3)
  1. LAMOTRIGINE. [Concomitant]
     Active Substance: LAMOTRIGINE
  2. LATUDA [Suspect]
     Active Substance: LURASIDONE HYDROCHLORIDE
     Indication: BIPOLAR DISORDER
     Dosage: ?          QUANTITY:1 TABLET(S);?
     Route: 048
     Dates: start: 20180611, end: 20180619
  3. DIVALPROEX ER [Concomitant]
     Active Substance: DIVALPROEX SODIUM

REACTIONS (5)
  - Insomnia [None]
  - Suicidal ideation [None]
  - Mania [None]
  - Depression [None]
  - Feeling cold [None]

NARRATIVE: CASE EVENT DATE: 20180620
